FAERS Safety Report 6793610-8 (Version None)
Quarter: 2010Q2

REPORT INFORMATION
  Report Type: 
  Country: None (occurrence: None)
  Receive Date: 20100624
  Receipt Date: 20090225
  Transmission Date: 20101027
  Serious: Yes (Other)
  Sender: FDA-Public Use
  Company Number: US-PFIZER INC-2008100661

PATIENT
  Sex: Female
  Weight: 71.655 kg

DRUGS (1)
  1. SUTENT [Suspect]
     Indication: RENAL CELL CARCINOMA
     Dosage: X 28 DAYS
     Route: 048
     Dates: start: 20080101

REACTIONS (1)
  - LIVER FUNCTION TEST ABNORMAL [None]
